FAERS Safety Report 25949859 (Version 1)
Quarter: 2025Q4

REPORT INFORMATION
  Report Type: Spontaneous
  Country: US (occurrence: US)
  Receive Date: 20251022
  Receipt Date: 20251022
  Transmission Date: 20260118
  Serious: Yes (Disabling)
  Sender: BIOMARIN
  Company Number: US-SA-2025SA309584

PATIENT
  Age: 6 Year
  Sex: Female

DRUGS (1)
  1. LARONIDASE [Suspect]
     Active Substance: LARONIDASE
     Indication: Mucopolysaccharidosis I
     Dosage: 52.2 (UNITS NOT PROVIDED), QOW
     Dates: start: 200306

REACTIONS (4)
  - Visual impairment [Not Recovered/Not Resolved]
  - Mucopolysaccharidosis I [Unknown]
  - Condition aggravated [Unknown]
  - Inappropriate schedule of product administration [Unknown]

NARRATIVE: CASE EVENT DATE: 20030601
